FAERS Safety Report 4828279-2 (Version None)
Quarter: 2005Q4

REPORT INFORMATION
  Report Type: 
  Country: None (occurrence: None)
  Receive Date: 20051115
  Receipt Date: 20050502
  Transmission Date: 20060501
  Serious: No
  Sender: FDA-Public Use
  Company Number: US-BRISTOL-MYERS SQUIBB COMPANY-12953303

PATIENT
  Age: 47 Year
  Sex: Male
  Weight: 75 kg

DRUGS (6)
  1. SUSTIVA [Suspect]
     Indication: HIV INFECTION
     Dates: start: 20050101
  2. REYATAZ [Concomitant]
  3. PRAVACHOL [Concomitant]
  4. VIREAD [Concomitant]
  5. PLAVIX [Concomitant]
  6. NORVIR [Concomitant]

REACTIONS (1)
  - DYSPNOEA [None]
